FAERS Safety Report 4746634-6 (Version None)
Quarter: 2005Q3

REPORT INFORMATION
  Report Type: 
  Country: None (occurrence: None)
  Receive Date: 20050817
  Receipt Date: 20050804
  Transmission Date: 20060218
  Serious: Yes (Death, Life-Threatening, Hospitalization)
  Sender: FDA-Public Use
  Company Number: PHHO2005US12287

PATIENT
  Age: 55 Year
  Sex: Male
  Weight: 72 kg

DRUGS (4)
  1. RAD001A [Suspect]
     Indication: HEART TRANSPLANT
     Dosage: 0.5 MG, BID
     Route: 048
     Dates: start: 20050712, end: 20050803
  2. NEORAL [Suspect]
     Indication: HEART TRANSPLANT
     Dosage: 175 MG, BID
     Route: 048
     Dates: start: 20050712
  3. PREDNISONE [Suspect]
     Indication: HEART TRANSPLANT
  4. ZENAPAX [Suspect]
     Indication: HEART TRANSPLANT

REACTIONS (13)
  - ABSCESS [None]
  - ABSCESS DRAINAGE [None]
  - BACTERIAL INFECTION [None]
  - EXTRACORPOREAL MEMBRANE OXYGENATION [None]
  - HYPOTENSION [None]
  - HYPOXIA [None]
  - INTUBATION [None]
  - LETHARGY [None]
  - LIFE SUPPORT [None]
  - PSEUDOMONAS INFECTION [None]
  - PYREXIA [None]
  - SEPSIS [None]
  - TACHYCARDIA [None]
